FAERS Safety Report 25118460 (Version 1)
Quarter: 2025Q1

REPORT INFORMATION
  Report Type: Spontaneous
  Country: US (occurrence: None)
  Receive Date: 20250324
  Receipt Date: 20250324
  Transmission Date: 20250408
  Serious: No
  Sender: FDA-CTU
  Company Number: None

PATIENT
  Age: 16 Year
  Sex: Male
  Weight: 67.13 kg

DRUGS (2)
  1. ADAPALENE [Suspect]
     Active Substance: ADAPALENE
     Indication: Acne
     Dosage: APPLY A THIN LAYER TO AFFECTED AREA(S) EVERY NIGHT, ALL OVER FACE AS TOLERATED.?
     Route: 061
     Dates: start: 202412
  2. SEYSARA [Suspect]
     Active Substance: SARECYCLINE HYDROCHLORIDE
     Indication: Acne

REACTIONS (1)
  - COVID-19 [None]
